FAERS Safety Report 13622708 (Version 1)
Quarter: 2017Q2

REPORT INFORMATION
  Report Type: Other
  Country: GB (occurrence: AU)
  Receive Date: 20170607
  Receipt Date: 20170607
  Transmission Date: 20170830
  Serious: Yes (Hospitalization, Disabling, Other)
  Sender: FDA-Public Use
  Company Number: AU-INTERNATIONAL MEDICATION SYSTEMS, LIMITED-2021658

PATIENT
  Age: 81 Year
  Sex: Female

DRUGS (7)
  1. METARAMINOL [Concomitant]
     Active Substance: METARAMINOL
  2. EPINEPHRINE. [Suspect]
     Active Substance: EPINEPHRINE
  3. EPINEPHRINE. [Suspect]
     Active Substance: EPINEPHRINE
  4. NOREPINEPHRINE STABILIZED BETWEEN 0.2 AND 0.36 MCG/KG/MIN [Suspect]
     Active Substance: NOREPINEPHRINE
  5. NOREPINEPHRINE. [Suspect]
     Active Substance: NOREPINEPHRINE
  6. EPINEPHRINE. [Suspect]
     Active Substance: EPINEPHRINE
  7. EPINEPHRINE. [Suspect]
     Active Substance: EPINEPHRINE
     Indication: BLOOD PRESSURE MANAGEMENT

REACTIONS (2)
  - Anterior spinal artery syndrome [Not Recovered/Not Resolved]
  - Hyperlactacidaemia [Unknown]
